FAERS Safety Report 4696945-8 (Version None)
Quarter: 2005Q2

REPORT INFORMATION
  Report Type: 
  Country: None (occurrence: None)
  Receive Date: 20050620
  Receipt Date: 20050504
  Transmission Date: 20051028
  Serious: No
  Sender: FDA-Public Use
  Company Number: US-YAMANOUCHI-YPA20050246

PATIENT
  Age: 65 Year
  Sex: Male

DRUGS (4)
  1. VESICARE [Suspect]
     Indication: POST PROCEDURAL COMPLICATION
     Dosage: 5 MG QD PO
     Route: 048
     Dates: start: 20050502
  2. VESICARE [Suspect]
     Indication: PROSTATIC OPERATION
     Dosage: 5 MG QD PO
     Route: 048
     Dates: start: 20050502
  3. VESICARE [Suspect]
     Indication: URINARY INCONTINENCE
     Dosage: 5 MG QD PO
     Route: 048
     Dates: start: 20050502
  4. IMIPRAMINE [Concomitant]

REACTIONS (3)
  - DRY EYE [None]
  - DRY MOUTH [None]
  - DRY SKIN [None]
